FAERS Safety Report 20905807 (Version 5)
Quarter: 2022Q3

REPORT INFORMATION
  Report Type: Spontaneous
  Country: CH (occurrence: CH)
  Receive Date: 20220602
  Receipt Date: 20220826
  Transmission Date: 20221027
  Serious: Yes (Death, Hospitalization, Other)
  Sender: FDA-Public Use
  Company Number: CH-INCYTE CORPORATION-2022IN003363

PATIENT

DRUGS (26)
  1. PEMAZYRE [Suspect]
     Active Substance: PEMIGATINIB
     Indication: Cholangiocarcinoma
     Dosage: 13.5 MILLIGRAM/QD Q14D
     Route: 048
     Dates: start: 20220326, end: 20220401
  2. PEMAZYRE [Suspect]
     Active Substance: PEMIGATINIB
     Dosage: 13.5 MILLIGRAM/QD
     Route: 048
     Dates: start: 20220429, end: 20220506
  3. PEMAZYRE [Suspect]
     Active Substance: PEMIGATINIB
     Dosage: 9 MILLIGRAM
     Route: 048
     Dates: start: 20220507, end: 20220512
  4. PEMAZYRE [Suspect]
     Active Substance: PEMIGATINIB
     Dosage: 13.5 MILLIGRAM/QD
     Route: 048
     Dates: start: 20220523
  5. PEMAZYRE [Suspect]
     Active Substance: PEMIGATINIB
     Dosage: 13.5 MILLIGRAM, DAY 1-14, THEN PAUSE DAY 15-21
     Route: 065
     Dates: start: 20220326
  6. PEMAZYRE [Suspect]
     Active Substance: PEMIGATINIB
     Dosage: 13.5 MILLIGRAM (2ND CYCLE)
     Route: 065
     Dates: end: 20220606
  7. PEMAZYRE [Suspect]
     Active Substance: PEMIGATINIB
     Dosage: 9 MILLIGRAM (3RD CYCLE)
     Route: 065
     Dates: start: 20220616, end: 20220618
  8. MORPHINE [Concomitant]
     Active Substance: MORPHINE
     Indication: Product used for unknown indication
     Dosage: 10 MILLIGRAM, BID
     Route: 065
     Dates: start: 20220405
  9. REMERON [Concomitant]
     Active Substance: MIRTAZAPINE
     Indication: Product used for unknown indication
     Dosage: 30 MILLIGRAM, QPM
     Route: 065
     Dates: start: 20220307
  10. NOVALGIN (METAMIZOLE SODIUM) [Concomitant]
     Active Substance: METAMIZOLE SODIUM
     Indication: Pain
     Dosage: 500 MILLIGRAM, TID
     Route: 065
     Dates: start: 20220307
  11. TORREM [TORASEMIDE] [Concomitant]
     Indication: Product used for unknown indication
     Dosage: 10 MILLIGRAM, QAM
     Route: 065
     Dates: start: 20220307
  12. ELIQUIS [Concomitant]
     Active Substance: APIXABAN
     Indication: Product used for unknown indication
     Dosage: 2.5 MILLIGRAM, BID
     Route: 065
     Dates: start: 20220307
  13. MOTILIUM [Concomitant]
     Active Substance: DOMPERIDONE
     Indication: Product used for unknown indication
     Dosage: 10 MILLIGRAM, TID
     Route: 065
     Dates: start: 20220307
  14. FLATULEX [SIMETICONE] [Concomitant]
     Indication: Product used for unknown indication
     Dosage: 42 MILLIGRAM, TID
     Route: 065
     Dates: start: 20220307
  15. PANTOZOL [Concomitant]
     Active Substance: PANTOPRAZOLE SODIUM
     Indication: Product used for unknown indication
     Dosage: 40 MILLIGRAM, QAM
     Route: 065
     Dates: start: 20220307
  16. SODIUM PICOSULFATE [Concomitant]
     Active Substance: SODIUM PICOSULFATE
     Indication: Laxative supportive care
     Dosage: 15 GTT, QPM
     Route: 065
     Dates: start: 20220307
  17. SODIUM PICOSULFATE [Concomitant]
     Active Substance: SODIUM PICOSULFATE
     Indication: Abnormal faeces
     Dosage: MINIMUM INTERVAL 1H
     Route: 065
  18. PRURI MED LIPOLOTION [Concomitant]
     Indication: Product used for unknown indication
     Dosage: 2X DAILY, BOTH LOWER LEGS, ABDOMEN
     Route: 065
     Dates: start: 20220307
  19. LORAZEPAM [Concomitant]
     Active Substance: LORAZEPAM
     Indication: Restlessness
     Dosage: 1 MILLIGRAM, MINIMUM INTERVAL 2H
     Route: 065
     Dates: start: 20220307
  20. QUETIAPINE [Concomitant]
     Active Substance: QUETIAPINE
     Indication: Restlessness
     Dosage: 12.5 MILLIGRAM, MINIMUM INTERVAL 1H
     Route: 065
     Dates: start: 20220307
  21. MOVICOL [Concomitant]
     Active Substance: POLYETHYLENE GLYCOL 3350\POTASSIUM CHLORIDE\SODIUM BICARBONATE\SODIUM CHLORIDE
     Indication: Abnormal faeces
     Dosage: MINIMUM INTERVAL 1H
     Route: 065
     Dates: start: 20220307
  22. MORPHINE HYDROCHLORIDE [Concomitant]
     Active Substance: MORPHINE HYDROCHLORIDE
     Indication: Pain
     Dosage: 20 MG/ML, MINIMUM INTERVAL 1H
     Route: 065
     Dates: start: 20220307
  23. MAGALDRATE [Concomitant]
     Active Substance: MAGALDRATE
     Indication: Gastrooesophageal reflux disease
     Dosage: 800 MILLIGRAM
     Route: 065
     Dates: start: 20220316
  24. MAGALDRATE [Concomitant]
     Active Substance: MAGALDRATE
     Indication: Dyspepsia
  25. BUTYLSCOPOLAMINE BROMIDE [Concomitant]
     Active Substance: BUTYLSCOPOLAMINE BROMIDE
     Indication: Muscle spasms
     Dosage: 10 MILLIGRAM
     Route: 065
     Dates: start: 20220307
  26. BUTYLSCOPOLAMINE BROMIDE [Concomitant]
     Active Substance: BUTYLSCOPOLAMINE BROMIDE
     Indication: Pain

REACTIONS (13)
  - Gallbladder rupture [Fatal]
  - Cholangitis infective [Fatal]
  - Renal impairment [Recovered/Resolved]
  - Cholangitis [Unknown]
  - Vomiting [Recovered/Resolved]
  - Blood creatinine increased [Recovered/Resolved]
  - Nausea [Recovered/Resolved]
  - Hyperphosphataemia [Unknown]
  - Dehydration [Unknown]
  - Incorrect dose administered [Unknown]
  - Gastrointestinal infection [Unknown]
  - Fluid intake reduced [Unknown]
  - Neoplasm progression [Unknown]

NARRATIVE: CASE EVENT DATE: 20220327
